FAERS Safety Report 4310867-3 (Version None)
Quarter: 2004Q1

REPORT INFORMATION
  Report Type: 
  Country: None (occurrence: None)
  Receive Date: 20040302
  Receipt Date: 20040219
  Transmission Date: 20041129
  Serious: Yes (Disabling, Other)
  Sender: FDA-Public Use
  Company Number: 2004199916FR

PATIENT
  Age: 9 Year
  Sex: Female

DRUGS (1)
  1. TRELSTAR DEPOT [Suspect]
     Indication: PRECOCIOUS PUBERTY
     Dosage: 3 MG/28 DAYS, INTRAMUSCULAR
     Route: 030
     Dates: start: 20020101

REACTIONS (3)
  - ACCOMMODATION DISORDER [None]
  - DIPLOPIA [None]
  - VISUAL FIELD DEFECT [None]
